FAERS Safety Report 6508948-9 (Version None)
Quarter: 2009Q4

REPORT INFORMATION
  Report Type: 
  Country: None (occurrence: None)
  Receive Date: 20091221
  Receipt Date: 20090923
  Transmission Date: 20100525
  Serious: No
  Sender: FDA-Public Use
  Company Number: US-ASTRAZENECA-2009SE14860

PATIENT
  Sex: Female
  Weight: 89.8 kg

DRUGS (5)
  1. CRESTOR [Suspect]
     Route: 048
  2. FASOMAX [Concomitant]
  3. SULAR [Concomitant]
  4. DENECAR [Concomitant]
  5. ASPIRIN [Concomitant]

REACTIONS (1)
  - THROAT IRRITATION [None]
